FAERS Safety Report 11237257 (Version 3)
Quarter: 2015Q4

REPORT INFORMATION
  Report Type: Report from Study
  Country: US (occurrence: US)
  Receive Date: 20150703
  Receipt Date: 20151028
  Transmission Date: 20160304
  Serious: No
  Sender: FDA-Public Use
  Company Number: PHEH2014US015704

PATIENT
  Age: 59 Year
  Sex: Female
  Weight: 44.45 kg

DRUGS (2)
  1. DEFEROXAMINE [Suspect]
     Active Substance: DEFEROXAMINE\DEFEROXAMINE MESYLATE
     Indication: IRON METABOLISM DISORDER
     Route: 065
  2. DESFERAL [Suspect]
     Active Substance: DEFEROXAMINE MESYLATE
     Indication: IRON METABOLISM DISORDER
     Dosage: 500 MG, QD
     Route: 058
     Dates: start: 20150616, end: 20150618

REACTIONS (14)
  - Thrombocytosis [Unknown]
  - Abdominal discomfort [Unknown]
  - Extramedullary haemopoiesis [Unknown]
  - General physical health deterioration [Unknown]
  - Leukocytosis [Unknown]
  - Inappropriate schedule of drug administration [Unknown]
  - Nausea [Recovering/Resolving]
  - Anaemia [Unknown]
  - Influenza [Unknown]
  - Drug hypersensitivity [Unknown]
  - Blood iron increased [Unknown]
  - Pruritus [Recovering/Resolving]
  - Drug dispensing error [Unknown]
  - Malaise [Unknown]

NARRATIVE: CASE EVENT DATE: 20150616
